FAERS Safety Report 6517379-7 (Version None)
Quarter: 2009Q4

REPORT INFORMATION
  Report Type: 
  Country: None (occurrence: None)
  Receive Date: 20091218
  Receipt Date: 20091211
  Transmission Date: 20100525
  Serious: Yes (Other)
  Sender: FDA-Public Use
  Company Number: 09-527

PATIENT
  Age: 73 Year
  Sex: Male

DRUGS (1)
  1. ALEVE [Suspect]
     Indication: ARTHRITIS
     Dosage: 440 MG, DAILY, ORAL
     Route: 048
     Dates: start: 20091206

REACTIONS (1)
  - PENILE HAEMORRHAGE [None]
